FAERS Safety Report 18960452 (Version 1)
Quarter: 2021Q1

REPORT INFORMATION
  Report Type: Spontaneous
  Country: US (occurrence: US)
  Receive Date: 20210303
  Receipt Date: 20210303
  Transmission Date: 20210420
  Serious: No
  Sender: FDA-Public Use
  Company Number: US-ELI_LILLY_AND_COMPANY-US202103000480

PATIENT
  Sex: Female

DRUGS (2)
  1. HUMULIN N [Suspect]
     Active Substance: INSULIN HUMAN
     Indication: GESTATIONAL DIABETES
     Dosage: 10 U, DAILY END OF DAY
     Route: 065
     Dates: start: 202101
  2. HUMULIN N [Suspect]
     Active Substance: INSULIN HUMAN
     Dosage: 13 U, DAILY END OF DAY
     Route: 065

REACTIONS (2)
  - Maternal exposure during pregnancy [Unknown]
  - Blood glucose increased [Unknown]
